FAERS Safety Report 21269733 (Version 1)
Quarter: 2022Q3

REPORT INFORMATION
  Report Type: Spontaneous
  Country: US (occurrence: US)
  Receive Date: 20220830
  Receipt Date: 20220830
  Transmission Date: 20221027
  Serious: Yes (Hospitalization)
  Sender: FDA-Public Use
  Company Number: US-NALPROPION PHARMACEUTICALS INC.-US-2022CUR022707

PATIENT
  Age: 36 Year
  Sex: Female

DRUGS (1)
  1. CONTRAVE [Suspect]
     Active Substance: BUPROPION HYDROCHLORIDE\NALTREXONE HYDROCHLORIDE
     Indication: Product used for unknown indication
     Dosage: STRENGTH 8/90MG, ONE PILL DAILY FOR FEW WEEKS
     Route: 048
     Dates: start: 202208, end: 202208

REACTIONS (7)
  - Malnutrition [Unknown]
  - Dehydration [Unknown]
  - Nausea [Unknown]
  - Fatigue [Unknown]
  - Vomiting [Unknown]
  - Patient dissatisfaction with treatment [Unknown]
  - Drug titration error [Unknown]

NARRATIVE: CASE EVENT DATE: 20220801
